FAERS Safety Report 15006996 (Version 1)
Quarter: 2018Q2

REPORT INFORMATION
  Report Type: Spontaneous
  Country: US (occurrence: US)
  Receive Date: 20180613
  Receipt Date: 20180613
  Transmission Date: 20180711
  Serious: Yes (Hospitalization, Other)
  Sender: FDA-Public Use
  Company Number: US-JNJFOC-20180611578

PATIENT
  Age: 55 Year
  Sex: Male
  Weight: 78.02 kg

DRUGS (1)
  1. INVOKANA [Suspect]
     Active Substance: CANAGLIFLOZIN
     Indication: TYPE 2 DIABETES MELLITUS
     Route: 048
     Dates: start: 20150410

REACTIONS (3)
  - Osteonecrosis [Unknown]
  - Cellulitis gangrenous [Unknown]
  - Toe amputation [Unknown]

NARRATIVE: CASE EVENT DATE: 201703
